FAERS Safety Report 5482889-0 (Version None)
Quarter: 2007Q4

REPORT INFORMATION
  Report Type: 
  Country: None (occurrence: None)
  Receive Date: 20071011
  Receipt Date: 20071001
  Transmission Date: 20080405
  Serious: Yes (Other)
  Sender: FDA-Public Use
  Company Number: CA-PFIZER INC-2007082682

PATIENT
  Age: 30 Year
  Sex: Female

DRUGS (5)
  1. NARDIL [Suspect]
     Dosage: DAILY DOSE:45MG
     Route: 048
  2. LEVATE [Suspect]
     Dosage: DAILY DOSE:150MG
     Route: 048
  3. SOMNOL TAB [Concomitant]
  4. NOCTEC [Concomitant]
  5. ATIVAN [Concomitant]

REACTIONS (6)
  - AMNESIA [None]
  - DYSPHAGIA [None]
  - EXTRAPYRAMIDAL DISORDER [None]
  - HYPOTENSION [None]
  - OCULOGYRIC CRISIS [None]
  - SPEECH DISORDER [None]
